FAERS Safety Report 15986295 (Version 2)
Quarter: 2019Q3

REPORT INFORMATION
  Report Type: Report from Study
  Country: BR (occurrence: BR)
  Receive Date: 20190220
  Receipt Date: 20190805
  Transmission Date: 20191004
  Serious: Yes (Other)
  Sender: FDA-Public Use
  Company Number: BR-BAYER-2017-187668

PATIENT
  Age: 54 Year
  Sex: Male

DRUGS (10)
  1. ESPIRONOLACTONA [Concomitant]
     Active Substance: SPIRONOLACTONE
     Indication: HYPERTENSION
     Dosage: 25 MG, UNK
  2. NEXAVAR [Suspect]
     Active Substance: SORAFENIB
     Indication: HEPATOCELLULAR CARCINOMA
     Dosage: 200 MG, BID
     Route: 048
     Dates: start: 201710
  3. NEXAVAR [Suspect]
     Active Substance: SORAFENIB
     Indication: HEPATOCELLULAR CARCINOMA
     Dosage: 800 MG, QD
     Route: 048
  4. AMLODIPINO [AMLODIPINE] [Concomitant]
     Indication: HYPERTENSION
     Dosage: 5 MG, UNK
  5. SLOW-K [Concomitant]
     Active Substance: POTASSIUM CHLORIDE
     Indication: HYPERTENSION
  6. METFORMINA [METFORMIN] [Concomitant]
     Active Substance: METFORMIN HYDROCHLORIDE
     Indication: HYPERTENSION
     Dosage: 500 MG, UNK
  7. NEXAVAR [Suspect]
     Active Substance: SORAFENIB
     Indication: HEPATOCELLULAR CARCINOMA
     Dosage: UNK
     Dates: start: 201709, end: 20170925
  8. PROPRANOLOL [Concomitant]
     Active Substance: PROPRANOLOL HYDROCHLORIDE
     Indication: HYPERTENSION
     Dosage: 20 MG, UNK
  9. ENALAPRIL MALEATE. [Concomitant]
     Active Substance: ENALAPRIL MALEATE
     Indication: HYPERTENSION
     Dosage: 20 MG, UNK
  10. LOSARTAN. [Concomitant]
     Active Substance: LOSARTAN
     Indication: HYPERTENSION
     Dosage: 50 MG, UNK

REACTIONS (23)
  - Rhinorrhoea [None]
  - Headache [None]
  - Pruritus [None]
  - Visual impairment [None]
  - Gastric disorder [None]
  - Proteinuria [None]
  - Dysphonia [None]
  - Blood potassium decreased [None]
  - Toxicity to various agents [None]
  - Malaise [Not Recovered/Not Resolved]
  - Urticaria [None]
  - Influenza [None]
  - Erythema [None]
  - Jaundice [None]
  - Hypertension [None]
  - Fatigue [None]
  - Eructation [None]
  - Erectile dysfunction [None]
  - Pyrexia [None]
  - Diarrhoea [None]
  - Rash [None]
  - Off label use [Not Recovered/Not Resolved]
  - Dry skin [None]

NARRATIVE: CASE EVENT DATE: 201709
